FAERS Safety Report 15121580 (Version 1)
Quarter: 2018Q3

REPORT INFORMATION
  Report Type: Spontaneous
  Country: IE (occurrence: IE)
  Receive Date: 20180709
  Receipt Date: 20180709
  Transmission Date: 20181010
  Serious: Yes (Death, Hospitalization, Other)
  Sender: FDA-Public Use
  Company Number: IE-JNJFOC-20180703250

PATIENT
  Age: 85 Year
  Sex: Female
  Weight: 94 kg

DRUGS (12)
  1. XARELTO [Suspect]
     Active Substance: RIVAROXABAN
     Indication: EMBOLISM
     Route: 048
  2. FUROSEMIDE. [Concomitant]
     Active Substance: FUROSEMIDE
     Route: 065
  3. BECLAZONE EASY BREATHE [Concomitant]
     Route: 055
  4. AROMASIN [Concomitant]
     Active Substance: EXEMESTANE
     Route: 065
  5. PARALIEF [Concomitant]
     Route: 048
  6. CALCICHEW?D3 FORTE [Concomitant]
     Active Substance: CALCIUM\CHOLECALCIFEROL
     Route: 065
  7. LANOXIN PG [Concomitant]
     Route: 048
  8. FOSAMAX [Concomitant]
     Active Substance: ALENDRONATE SODIUM
     Route: 065
  9. BISOPLUS AL [Concomitant]
     Route: 048
  10. LANSOPRAZOLE. [Concomitant]
     Active Substance: LANSOPRAZOLE
     Route: 048
  11. BRICANYL [Concomitant]
     Active Substance: TERBUTALINE SULFATE
     Route: 055
  12. LEVOCETIRIZINE DIHYDROCHLORIDE. [Concomitant]
     Active Substance: LEVOCETIRIZINE DIHYDROCHLORIDE
     Route: 048

REACTIONS (8)
  - Hypoxic-ischaemic encephalopathy [Fatal]
  - Sepsis [Fatal]
  - Cardiac arrest [Fatal]
  - Soft tissue haemorrhage [Not Recovered/Not Resolved]
  - Contusion [Not Recovered/Not Resolved]
  - Fall [Not Recovered/Not Resolved]
  - Soft tissue injury [Not Recovered/Not Resolved]
  - Laceration [Not Recovered/Not Resolved]

NARRATIVE: CASE EVENT DATE: 2018
